FAERS Safety Report 5639350-X (Version None)
Quarter: 2008Q1

REPORT INFORMATION
  Report Type: 
  Country: None (occurrence: None)
  Receive Date: 20080226
  Receipt Date: 20080214
  Transmission Date: 20080703
  Serious: Yes (Other)
  Sender: FDA-Public Use
  Company Number: US-PFIZER INC-2007064860

PATIENT
  Sex: Female
  Weight: 64.5 kg

DRUGS (11)
  1. CHANTIX [Suspect]
     Indication: SMOKING CESSATION THERAPY
     Dates: start: 20070705, end: 20070801
  2. ALL OTHER THERAPEUTIC PRODUCTS [Interacting]
  3. CYMBALTA [Concomitant]
  4. TOPAMAX [Concomitant]
  5. LORAZEPAM [Concomitant]
  6. TRAZODONE HCL [Concomitant]
  7. ALLEGRA [Concomitant]
  8. BENADRYL [Concomitant]
  9. LOMOTIL [Concomitant]
  10. ESTROGENS [Concomitant]
  11. MECLIZINE [Concomitant]

REACTIONS (8)
  - ACTIVITIES OF DAILY LIVING IMPAIRED [None]
  - BIPOLAR DISORDER [None]
  - BLOOD CHOLESTEROL INCREASED [None]
  - DELUSION [None]
  - DRUG INTERACTION [None]
  - FALL [None]
  - HALLUCINATION [None]
  - VERTIGO [None]
